FAERS Safety Report 19076553 (Version 1)
Quarter: 2021Q1

REPORT INFORMATION
  Report Type: Spontaneous
  Country: US (occurrence: US)
  Receive Date: 20210331
  Receipt Date: 20210331
  Transmission Date: 20210420
  Serious: No
  Sender: FDA-Public Use
  Company Number: US-SA-2018SA004968

PATIENT
  Age: 56 Year
  Sex: Female

DRUGS (1)
  1. CAPRELSA [Suspect]
     Active Substance: VANDETANIB
     Indication: THYROID CANCER
     Dosage: 200 MG,QD
     Route: 048
     Dates: start: 20171205, end: 20210318

REACTIONS (6)
  - Therapy change [Unknown]
  - Chapped lips [Unknown]
  - Disease progression [Unknown]
  - Diarrhoea [Unknown]
  - Therapy interrupted [Unknown]
  - Nasopharyngitis [Recovering/Resolving]
